FAERS Safety Report 15325124 (Version 2)
Quarter: 2021Q2

REPORT INFORMATION
  Report Type: Report from Study
  Country: US (occurrence: US)
  Receive Date: 20180828
  Receipt Date: 20210514
  Transmission Date: 20210716
  Serious: Yes (Hospitalization, Other)
  Sender: FDA-Public Use
  Company Number: US-UCBSA-2018036205

PATIENT
  Age: 2 Year
  Sex: Male

DRUGS (19)
  1. TYLENOL [Concomitant]
     Active Substance: ACETAMINOPHEN
     Indication: HEADACHE
     Dosage: 2 PILL
     Route: 064
     Dates: start: 20160426, end: 20160807
  2. BENADRYL [Concomitant]
     Active Substance: DIPHENHYDRAMINE HYDROCHLORIDE
     Indication: HYPERSENSITIVITY
     Dosage: 2 PILLS 5.5 WEEK
     Route: 064
     Dates: start: 20160512, end: 20161030
  3. DIPHTHERIA AND TETANUS TOXOIDS AND PERTUSSIS VACCINE ADSORBED NOS [Concomitant]
     Active Substance: DIPHTHERIA AND TETANUS TOXOIDS AND PERTUSSIS VACCINE
     Indication: PRODUCT USED FOR UNKNOWN INDICATION
     Dosage: UNK
     Route: 064
     Dates: start: 20161003, end: 20161003
  4. TYLENOL EXTRA STRENGTH [Concomitant]
     Active Substance: ACETAMINOPHEN
     Indication: HEADACHE
     Dosage: 1.5 PILL, WEEKLY (QW)
     Route: 064
     Dates: start: 20160908, end: 20161030
  5. MUCINEX [Concomitant]
     Active Substance: GUAIFENESIN
     Indication: HYPERSENSITIVITY
     Dosage: UNK
     Route: 064
     Dates: start: 20160512, end: 20160807
  6. ALBUTEROL. [Concomitant]
     Active Substance: ALBUTEROL
     Indication: ASTHMA
     Dosage: 2 PUFF 1.5 WEEK
     Route: 064
     Dates: start: 20160207, end: 20161030
  7. NYQUIL COLD AND FLU [Concomitant]
     Active Substance: ACETAMINOPHEN\DEXTROMETHORPHAN HYDROBROMIDE\DOXYLAMINE SUCCINATE
     Indication: NASOPHARYNGITIS
     Dosage: UNK
     Route: 064
     Dates: start: 20160220, end: 20161030
  8. VITAMIN D [Concomitant]
     Active Substance: VITAMIN D NOS
     Indication: HEADACHE
     Dosage: 2 PILL
     Route: 064
     Dates: start: 20160525, end: 20161030
  9. VITAMIN B12 [Concomitant]
     Active Substance: CYANOCOBALAMIN
     Indication: CARPAL TUNNEL SYNDROME
     Dosage: 1 DF, ONCE DAILY (QD)
     Route: 064
     Dates: start: 20160730, end: 20161030
  10. CERTOLIZUMAB PEGOL RA [Suspect]
     Active Substance: CERTOLIZUMAB PEGOL
     Indication: CROHN^S DISEASE
     Dosage: 400 MG, MONTHLY (QM)
     Route: 064
     Dates: start: 20160207, end: 20161023
  11. ZYRTEC [Suspect]
     Active Substance: CETIRIZINE HYDROCHLORIDE
     Indication: HYPERSENSITIVITY
     Dosage: 1 DF, ONCE DAILY (QD)
     Route: 064
     Dates: start: 20160621, end: 20160725
  12. FLU [Concomitant]
     Active Substance: INFLUENZA VIRUS VACCINE
     Indication: PRODUCT USED FOR UNKNOWN INDICATION
     Dosage: UNK, ONE TIME DOSE
     Route: 064
     Dates: start: 20161011, end: 20161011
  13. SINGULAIR [Concomitant]
     Active Substance: MONTELUKAST SODIUM
     Indication: ASTHMA
     Dosage: 10 MILLIGRAM
     Route: 064
     Dates: start: 20160207, end: 20161030
  14. TYLENOL [Concomitant]
     Active Substance: ACETAMINOPHEN
     Indication: ARTHRALGIA
  15. PRENATAL VITAMINS [Concomitant]
     Active Substance: VITAMINS
     Indication: SUPPLEMENTATION THERAPY
     Dosage: UNK
     Route: 064
     Dates: start: 20160207, end: 20160621
  16. TYLENOL [Concomitant]
     Active Substance: ACETAMINOPHEN
     Indication: NASOPHARYNGITIS
     Dosage: 1.5 PILL  ONCE DAILY
     Route: 064
     Dates: start: 20160220, end: 20161030
  17. CAFFEINE. [Concomitant]
     Active Substance: CAFFEINE
     Indication: PRODUCT USED FOR UNKNOWN INDICATION
     Dosage: UNK
     Route: 064
     Dates: start: 20160916, end: 20161023
  18. ASMANEX [Concomitant]
     Active Substance: MOMETASONE FUROATE
     Indication: ASTHMA
     Dosage: 1 PUFF ONCE DAILY (QD)
     Route: 064
     Dates: start: 20160207, end: 20161030
  19. IMURAN [Concomitant]
     Active Substance: AZATHIOPRINE
     Indication: CROHN^S DISEASE
     Dosage: UNK
     Route: 064
     Dates: start: 20160207, end: 20160224

REACTIONS (6)
  - Speech disorder [Unknown]
  - Gastroenteritis [Recovering/Resolving]
  - Sensory processing disorder [Unknown]
  - Language disorder [Unknown]
  - Maternal exposure before pregnancy [Unknown]
  - Developmental delay [Unknown]

NARRATIVE: CASE EVENT DATE: 20160207
